FAERS Safety Report 5148604-5 (Version None)
Quarter: 2006Q4

REPORT INFORMATION
  Report Type: 
  Country: None (occurrence: None)
  Receive Date: 20061107
  Receipt Date: 20061019
  Transmission Date: 20070319
  Serious: Yes (Death, Hospitalization)
  Sender: FDA-Public Use
  Company Number: 2006-06-0398

PATIENT
  Age: 62 Year
  Sex: Female

DRUGS (9)
  1. TEMODAL [Suspect]
     Indication: GLIOBLASTOMA MULTIFORME
     Dosage: 130 MG;PO
     Route: 048
     Dates: start: 20060303, end: 20060403
  2. RADIATION THERAPY [Concomitant]
  3. DILANTIN [Concomitant]
  4. ATENOLOL [Concomitant]
  5. FELODIPINE (S-P) [Concomitant]
  6. VASOTEC [Concomitant]
  7. HYDROCHLOROTHIAZIDE [Concomitant]
  8. CLOBAZAM [Concomitant]
  9. CITALOPRAM HYDROBROMIDE [Concomitant]

REACTIONS (2)
  - BONE MARROW FAILURE [None]
  - SEPSIS [None]
